FAERS Safety Report 13744529 (Version 1)
Quarter: 2017Q3

REPORT INFORMATION
  Report Type: Spontaneous
  Country: JP (occurrence: JP)
  Receive Date: 20170712
  Receipt Date: 20170712
  Transmission Date: 20171127
  Serious: No
  Sender: FDA-Public Use
  Company Number: JP-TAKEDA-2017TJP013469

PATIENT
  Age: 51 Year
  Sex: Male

DRUGS (2)
  1. TAKEPRON OD TABLETS 30 [Suspect]
     Active Substance: LANSOPRAZOLE
     Indication: GASTROOESOPHAGEAL REFLUX DISEASE
     Dosage: 30 MG, QD
     Route: 048
  2. TAKEPRON OD TABLETS 30 [Suspect]
     Active Substance: LANSOPRAZOLE
     Dosage: 30 MG, QD
     Route: 048
     Dates: end: 20170623

REACTIONS (1)
  - Visual impairment [Recovering/Resolving]
